FAERS Safety Report 11105978 (Version 1)
Quarter: 2015Q2

REPORT INFORMATION
  Report Type: Spontaneous
  Country: US (occurrence: US)
  Receive Date: 20150512
  Receipt Date: 20150512
  Transmission Date: 20150821
  Serious: Yes (Hospitalization)
  Sender: FDA-Public Use
  Company Number: US-SUN PHARMACEUTICAL INDUSTRIES LTD-2015US-96151

PATIENT
  Age: 48 Year
  Sex: Female

DRUGS (3)
  1. LITHIUM. [Suspect]
     Active Substance: LITHIUM
     Indication: MANIA
     Dosage: 600 MG, BID
     Route: 048
  2. LACTULOSE. [Interacting]
     Active Substance: LACTULOSE
     Indication: CONSTIPATION
     Dosage: 30 ML
     Route: 065
  3. LITHIUM. [Interacting]
     Active Substance: LITHIUM
     Indication: MANIA
     Dosage: 300MG IN MORNING AND 600MG IN EVENING
     Route: 048

REACTIONS (4)
  - Toxicity to various agents [Recovered/Resolved]
  - Tremor [Unknown]
  - Drug interaction [Recovering/Resolving]
  - Somnolence [Unknown]
